FAERS Safety Report 12442786 (Version 1)
Quarter: 2016Q2

REPORT INFORMATION
  Report Type: Spontaneous
  Country: US (occurrence: None)
  Receive Date: 20160606
  Receipt Date: 20160606
  Transmission Date: 20160815
  Serious: Yes (Disabling)
  Sender: FDA-Public Use
  Company Number: None

PATIENT
  Age: 49 Year
  Sex: Female
  Weight: 120.2 kg

DRUGS (9)
  1. CPAP [Concomitant]
     Active Substance: DEVICE
  2. MUCINEX [Concomitant]
     Active Substance: GUAIFENESIN
  3. ZRETEC [Concomitant]
  4. POTASSIUM CL [Concomitant]
     Active Substance: POTASSIUM CHLORIDE
  5. CYCLOBENZAPRINE [Concomitant]
     Active Substance: CYCLOBENZAPRINE
  6. TRAMADOL. [Concomitant]
     Active Substance: TRAMADOL
  7. FLONASE [Concomitant]
     Active Substance: FLUTICASONE PROPIONATE
  8. TYNENOL [Concomitant]
  9. JANUMET XR [Suspect]
     Active Substance: METFORMIN HYDROCHLORIDE\SITAGLIPTIN PHOSPHATE
     Indication: DRUG THERAPY
     Route: 048

REACTIONS (15)
  - Headache [None]
  - Pyrexia [None]
  - Intestinal obstruction [None]
  - Dehydration [None]
  - Discomfort [None]
  - Impaired work ability [None]
  - Pancreatitis acute [None]
  - Fatigue [None]
  - Stress [None]
  - Contusion [None]
  - Haemorrhoids [None]
  - Rectal haemorrhage [None]
  - Constipation [None]
  - Sleep disorder [None]
  - Chest pain [None]

NARRATIVE: CASE EVENT DATE: 20160331
